FAERS Safety Report 8961243 (Version 2)
Quarter: 2013Q1

REPORT INFORMATION
  Report Type: Spontaneous
  Country: US (occurrence: US)
  Receive Date: 20121213
  Receipt Date: 20130125
  Transmission Date: 20140127
  Serious: Yes (Life-Threatening, Other)
  Sender: FDA-Public Use
  Company Number: PHEH2012US024269

PATIENT
  Sex: Female

DRUGS (5)
  1. VIVELLE DOT [Suspect]
     Dosage: 0.025 MG, QW2 (TWICE WEEKLY)
     Route: 062
  2. CAFERGOT [Suspect]
  3. AMOXAPINE [Suspect]
     Indication: ANTIDEPRESSANT THERAPY
  4. LEXAPRO [Suspect]
     Indication: ANTIDEPRESSANT THERAPY
  5. CODEINE [Suspect]

REACTIONS (4)
  - Malaise [Unknown]
  - Malignant melanoma [Unknown]
  - Thyroid disorder [Unknown]
  - Drug hypersensitivity [Unknown]
